FAERS Safety Report 14766878 (Version 2)
Quarter: 2018Q2

REPORT INFORMATION
  Report Type: Spontaneous
  Country: IT (occurrence: IT)
  Receive Date: 20180417
  Receipt Date: 20180426
  Transmission Date: 20180711
  Serious: Yes (Hospitalization)
  Sender: FDA-Public Use
  Company Number: IT-UCBSA-2018017123

PATIENT
  Age: 9 Year
  Sex: Female
  Weight: 28 kg

DRUGS (1)
  1. VIMPAT [Suspect]
     Active Substance: LACOSAMIDE
     Indication: EPILEPSY
     Dosage: 250 MG, 2X/2 DAYS
     Route: 048
     Dates: start: 20180101, end: 20180408

REACTIONS (3)
  - Asthenia [Unknown]
  - Epilepsy [Unknown]
  - Balance disorder [Unknown]

NARRATIVE: CASE EVENT DATE: 20180407
